FAERS Safety Report 18288577 (Version 1)
Quarter: 2020Q3

REPORT INFORMATION
  Report Type: Spontaneous
  Country: CN (occurrence: CN)
  Receive Date: 20200921
  Receipt Date: 20200921
  Transmission Date: 20201103
  Serious: Yes (Hospitalization)
  Sender: FDA-Public Use
  Company Number: CN-ELI_LILLY_AND_COMPANY-CN202009003697

PATIENT
  Age: 61 Year
  Sex: Female
  Weight: 59 kg

DRUGS (3)
  1. INSULIN LISPRO [Suspect]
     Active Substance: INSULIN LISPRO
     Indication: TYPE 2 DIABETES MELLITUS
  2. INSULIN LISPRO [Suspect]
     Active Substance: INSULIN LISPRO
     Indication: BLOOD GLUCOSE INCREASED
     Dosage: 15 U, TID
     Route: 058
     Dates: start: 20200808, end: 20200810
  3. INSULIN ASPART [Suspect]
     Active Substance: INSULIN ASPART
     Indication: BLOOD GLUCOSE INCREASED
     Dosage: 8 U, BID
     Route: 058
     Dates: start: 20200810, end: 20200811

REACTIONS (8)
  - Injection site pruritus [Unknown]
  - Injection site pain [Unknown]
  - Fatigue [Unknown]
  - Injection site erythema [Unknown]
  - Skin lesion [Unknown]
  - Injection site swelling [Unknown]
  - Injection site dermatitis [Recovering/Resolving]
  - Ketoacidosis [Unknown]

NARRATIVE: CASE EVENT DATE: 202008
